FAERS Safety Report 5224426-1 (Version None)
Quarter: 2007Q1

REPORT INFORMATION
  Report Type: 
  Country: None (occurrence: None)
  Receive Date: 20070130
  Receipt Date: 20070119
  Transmission Date: 20070707
  Serious: Yes (Other)
  Sender: FDA-Public Use
  Company Number: BR-PFIZER INC-2006147498

PATIENT
  Sex: Female

DRUGS (3)
  1. DOSTINEX [Suspect]
     Indication: PITUITARY TUMOUR BENIGN
     Route: 048
  2. DOSTINEX [Suspect]
     Indication: HYPERPROLACTINAEMIA
  3. ATENOLOL [Concomitant]
     Indication: HYPERTENSION
     Route: 048

REACTIONS (3)
  - AGITATION [None]
  - BLOOD PROLACTIN DECREASED [None]
  - DEPRESSION [None]
